FAERS Safety Report 6316940-2 (Version None)
Quarter: 2009Q3

REPORT INFORMATION
  Report Type: 
  Country: None (occurrence: None)
  Receive Date: 20090820
  Receipt Date: 20090812
  Transmission Date: 20100115
  Serious: Yes (Hospitalization)
  Sender: FDA-Public Use
  Company Number: PHHY2009GB30075

PATIENT
  Sex: Male

DRUGS (5)
  1. CLOZARIL [Suspect]
     Indication: SCHIZOPHRENIA
     Dosage: 300 MG/DAY
     Route: 048
     Dates: start: 20010906
  2. LANSOPRAZOLE [Concomitant]
     Indication: DYSPEPSIA
     Dosage: 30 MG, UNK
     Route: 048
  3. SALBUTAMOL [Concomitant]
     Indication: DYSPNOEA
     Dosage: 800 UG, UNK
     Route: 048
  4. SENNA [Concomitant]
     Indication: CONSTIPATION
     Dosage: 2 DF, UNK
     Route: 048
  5. CLENIL [Concomitant]
     Indication: DYSPNOEA
     Dosage: 400 UG, UNK
     Route: 048

REACTIONS (1)
  - GASTROINTESTINAL CARCINOMA [None]
